FAERS Safety Report 5899997-2 (Version None)
Quarter: 2008Q3

REPORT INFORMATION
  Report Type: 
  Country: None (occurrence: None)
  Receive Date: 20080926
  Receipt Date: 20080917
  Transmission Date: 20090109
  Serious: Yes (Other)
  Sender: FDA-Public Use
  Company Number: JP-ASTRAZENECA-2008SE00017

PATIENT
  Sex: Female
  Weight: 54 kg

DRUGS (4)
  1. BLOPRESS TABLETS 4 [Suspect]
     Indication: HYPERTENSION
     Route: 048
     Dates: start: 20050322, end: 20060424
  2. AMLODIPINE BESYLATE [Concomitant]
     Indication: HYPERTENSION
     Route: 048
     Dates: start: 20041119, end: 20050620
  3. AMLODIPINE BESYLATE [Concomitant]
     Route: 048
     Dates: start: 20050621, end: 20060424
  4. AMLODIPINE BESYLATE [Concomitant]
     Route: 048
     Dates: start: 20060425

REACTIONS (1)
  - INTERSTITIAL LUNG DISEASE [None]
